FAERS Safety Report 7800364-2 (Version None)
Quarter: 2011Q4

REPORT INFORMATION
  Report Type: 
  Country: None (occurrence: None)
  Receive Date: 20111006
  Receipt Date: 20111004
  Transmission Date: 20120403
  Serious: Yes (Death, Hospitalization)
  Sender: FDA-Public Use
  Company Number: US-B.I. PHARMACEUTICALS,INC./RIDGEFIELD-2009-BP-00459BP

PATIENT
  Sex: Female
  Weight: 91 kg

DRUGS (9)
  1. DABIGATRAN [Suspect]
     Indication: CEREBROVASCULAR ACCIDENT PROPHYLAXIS
     Route: 048
     Dates: start: 20070830
  2. PRILOSEC [Concomitant]
     Indication: GASTROOESOPHAGEAL REFLUX DISEASE
     Dosage: 20 MG
     Route: 048
  3. LISINOPRIL [Concomitant]
     Indication: BLOOD PRESSURE
     Dosage: 20 MG
     Route: 048
  4. METOPROLOL TARTRATE [Concomitant]
     Indication: CARDIAC FAILURE CONGESTIVE
     Dosage: 100 MG
     Route: 048
  5. DABIGATRAN [Suspect]
     Indication: ATRIAL FIBRILLATION
  6. BUMEX [Concomitant]
     Indication: DIURETIC THERAPY
     Dosage: 2.25 MCG
     Route: 048
  7. BUMEX [Concomitant]
     Indication: SWELLING
  8. AVAPRO [Concomitant]
     Indication: HYPERTENSION
     Dosage: 300 MG
     Route: 048
  9. METOPROLOL TARTRATE [Concomitant]
     Indication: BLOOD PRESSURE
     Dosage: 25 MG
     Route: 048
     Dates: end: 20081228

REACTIONS (8)
  - INTESTINAL ISCHAEMIA [None]
  - RENAL FAILURE [None]
  - POST PROCEDURAL HAEMORRHAGE [None]
  - COAGULOPATHY [None]
  - DISSEMINATED INTRAVASCULAR COAGULATION [None]
  - SHOCK [None]
  - FALL [None]
  - INFECTIOUS PERITONITIS [None]
